FAERS Safety Report 25782548 (Version 3)
Quarter: 2025Q4

REPORT INFORMATION
  Report Type: Report from Study
  Country: US (occurrence: US)
  Receive Date: 20250909
  Receipt Date: 20251210
  Transmission Date: 20260118
  Serious: No
  Sender: BIOGEN
  Company Number: US-BIOGEN-2025BI01323254

PATIENT
  Age: 33 Year
  Sex: Female

DRUGS (2)
  1. ZURZUVAE [Suspect]
     Active Substance: ZURANOLONE
     Indication: Perinatal depression
     Dosage: DOSAGE TEXT:2- 25MG CAPSULE
     Dates: start: 20250821, end: 20250822
  2. ZURZUVAE [Suspect]
     Active Substance: ZURANOLONE
     Dates: start: 20250903, end: 20250906

REACTIONS (3)
  - Off label use [Recovered/Resolved]
  - Sedation [Recovered/Resolved]
  - Somnolence [Not Recovered/Not Resolved]

NARRATIVE: CASE EVENT DATE: 20250822
